FAERS Safety Report 7077868 (Version 3)
Quarter: 2016Q3

REPORT INFORMATION
  Report Type: Report from Study
  Country: US (occurrence: US)
  Receive Date: 20090811
  Receipt Date: 20160830
  Transmission Date: 20161109
  Serious: Yes (Hospitalization)
  Sender: FDA-Public Use
  Company Number: US-PFIZER INC-2007004623

PATIENT
  Age: 77 Year
  Sex: Female
  Weight: 74.84 kg

DRUGS (22)
  1. NEXIUM [Concomitant]
     Active Substance: ESOMEPRAZOLE MAGNESIUM
     Indication: PROPHYLAXIS
     Dosage: 20 OR 40 MG/KG DAILY
     Route: 048
  2. FLAXSEED [Concomitant]
     Active Substance: FLAX SEED
     Dosage: 1000 G, 1X/DAY
     Route: 048
     Dates: start: 20051003
  3. DICYCLOMINE [Concomitant]
     Active Substance: DICYCLOMINE HYDROCHLORIDE
     Dosage: 10 G, 1X/DAY
     Route: 048
     Dates: start: 20061116
  4. ASA [Concomitant]
     Active Substance: ASPIRIN
     Dosage: 81 G, 1X/DAY
     Route: 048
     Dates: start: 20070113
  5. PRAZOSIN [Concomitant]
     Active Substance: PRAZOSIN
     Dosage: 5 MG, 1X/DAY
  6. ULTRACET [Concomitant]
     Active Substance: ACETAMINOPHEN\TRAMADOL HYDROCHLORIDE
     Dosage: 37.5 G, HS
     Route: 048
     Dates: start: 20020724
  7. MULTIVITAMINS [Concomitant]
     Active Substance: VITAMINS
     Dosage: UNK UNK, 3X/DAY
     Route: 048
     Dates: start: 20010813
  8. VITACAL [Concomitant]
     Route: 048
     Dates: start: 20060317
  9. CALCIUM WITH VITAMIN D [Concomitant]
     Active Substance: CALCIUM\VITAMIN D
     Dosage: UNK, 2X/DAY
     Route: 048
     Dates: start: 20060307
  10. NAPROXEN. [Suspect]
     Active Substance: NAPROXEN
     Indication: RHEUMATOID ARTHRITIS
  11. LYSINE [Concomitant]
     Active Substance: LYSINE
     Dosage: 500 G, 1X/DAY
     Route: 048
     Dates: start: 20020107
  12. DIPHENHYDRAMINE. [Concomitant]
     Active Substance: DIPHENHYDRAMINE
     Dosage: 25 G, AS NEEDED
     Route: 048
     Dates: start: 20020107
  13. LECITHIN [Concomitant]
     Active Substance: LECITHIN
     Dosage: 400 G, 1X/DAY
     Route: 048
     Dates: start: 20020107
  14. CYCLOBENZAPRINE [Concomitant]
     Active Substance: CYCLOBENZAPRINE
     Dosage: 10G, HS
     Route: 048
     Dates: start: 20060627
  15. LISINOPRIL. [Concomitant]
     Active Substance: LISINOPRIL
     Dosage: 5 G, 1X/DAY
     Route: 048
     Dates: start: 20070113
  16. ATENOLOL. [Concomitant]
     Active Substance: ATENOLOL
     Dosage: 15G/25G,AM/HS
     Route: 048
     Dates: start: 20000802
  17. LANSOPRAZOLE. [Concomitant]
     Active Substance: LANSOPRAZOLE
     Dosage: 30 G, 1X/DAY
     Route: 048
     Dates: start: 20070113, end: 20070117
  18. NAPROXEN. [Suspect]
     Active Substance: NAPROXEN
     Indication: OSTEOARTHRITIS
     Dosage: UNK
     Route: 048
     Dates: start: 20061220, end: 20070319
  19. ROSUVASTATIN. [Concomitant]
     Active Substance: ROSUVASTATIN
     Dosage: 20 G, 1X/DAY
     Route: 048
     Dates: start: 20060104
  20. GLUCOTROL [Concomitant]
     Active Substance: GLIPIZIDE
     Dosage: 2.5 G, 1X/DAY
     Route: 048
     Dates: start: 20060627
  21. LEVOTHYROXINE. [Concomitant]
     Active Substance: LEVOTHYROXINE
     Dosage: 0.125 G, 1X/DAY
     Route: 048
     Dates: start: 20050310
  22. EZETIMIBE. [Concomitant]
     Active Substance: EZETIMIBE
     Dosage: 10 G, 1X/DAY
     Route: 048
     Dates: start: 20050310

REACTIONS (1)
  - Heart rate irregular [Recovered/Resolved]

NARRATIVE: CASE EVENT DATE: 20070113
